FAERS Safety Report 24282042 (Version 1)
Quarter: 2024Q3

REPORT INFORMATION
  Report Type: Spontaneous
  Country: CA (occurrence: CA)
  Receive Date: 20240904
  Receipt Date: 20240904
  Transmission Date: 20241017
  Serious: Yes (Other)
  Sender: PFIZER
  Company Number: CA-PFIZER INC-2021515670

PATIENT
  Age: 53 Year
  Sex: Female

DRUGS (1)
  1. RUXIENCE [Suspect]
     Active Substance: RITUXIMAB-PVVR
     Indication: Autoimmune myositis
     Dosage: 1000 MG, ON DAY 1 AND 15 FIRST DOSE (DAY 1)
     Route: 042
     Dates: start: 20240831

REACTIONS (4)
  - Throat irritation [Recovered/Resolved]
  - Enlarged uvula [Recovered/Resolved]
  - Somnolence [Recovered/Resolved]
  - Off label use [Unknown]

NARRATIVE: CASE EVENT DATE: 20240831
